FAERS Safety Report 7797753-1 (Version None)
Quarter: 2011Q4

REPORT INFORMATION
  Report Type: 
  Country: None (occurrence: None)
  Receive Date: 20111005
  Receipt Date: 20110930
  Transmission Date: 20120403
  Serious: Yes (Death)
  Sender: FDA-Public Use
  Company Number: PHHY2011BR87420

PATIENT
  Sex: Male

DRUGS (3)
  1. DIOVAN [Suspect]
     Indication: HYPERTENSION
  2. CALYPTOL [Concomitant]
  3. CAPTOPRIL [Concomitant]

REACTIONS (2)
  - HYPERTENSION [None]
  - PNEUMONIA [None]
